FAERS Safety Report 15927259 (Version 2)
Quarter: 2019Q2

REPORT INFORMATION
  Report Type: Spontaneous
  Country: US (occurrence: US)
  Receive Date: 20190206
  Receipt Date: 20190411
  Transmission Date: 20190711
  Serious: No
  Sender: FDA-Public Use
  Company Number: US-GLAXOSMITHKLINE-US2019019180

PATIENT
  Sex: Male

DRUGS (2)
  1. PLAQUENIL [Suspect]
     Active Substance: HYDROXYCHLOROQUINE SULFATE
  2. BENLYSTA [Suspect]
     Active Substance: BELIMUMAB
     Indication: SYSTEMIC LUPUS ERYTHEMATOSUS
     Dosage: 200 MG, UNK
     Route: 058
     Dates: start: 201809

REACTIONS (10)
  - Injection site pain [Unknown]
  - Pain in extremity [Unknown]
  - Restlessness [Unknown]
  - Peripheral swelling [Unknown]
  - Multiple drug therapy [Unknown]
  - Arthritis [Unknown]
  - Cough [Unknown]
  - Visual impairment [Unknown]
  - Adverse drug reaction [Unknown]
  - Insomnia [Unknown]
